FAERS Safety Report 19238103 (Version 1)
Quarter: 2021Q2

REPORT INFORMATION
  Report Type: Spontaneous
  Country: US (occurrence: US)
  Receive Date: 20210510
  Receipt Date: 20210510
  Transmission Date: 20210717
  Serious: Yes (Hospitalization)
  Sender: FDA-Public Use
  Company Number: None

PATIENT
  Sex: Male

DRUGS (3)
  1. COSENTYX [Suspect]
     Active Substance: SECUKINUMAB
     Indication: PSORIATIC ARTHROPATHY
     Dosage: ?          OTHER FREQUENCY:EVERY FOUR WEEKS;?
     Route: 058
     Dates: start: 20200627
  2. HYDROCHLOROTHIAZIDE, ATORVASTATIN, GABAPENTIN, ESCITALOPRAM, ETODOLAC [Concomitant]
  3. ETODOLAC, OXAPROZIN, LORASTAN POTASSIUM [Concomitant]

REACTIONS (3)
  - Condition aggravated [None]
  - Surgery [None]
  - Therapy interrupted [None]
